FAERS Safety Report 5586129-3 (Version None)
Quarter: 2007Q4

REPORT INFORMATION
  Report Type: 
  Country: None (occurrence: None)
  Receive Date: 20071205
  Receipt Date: 20070410
  Transmission Date: 20080405
  Serious: Yes (Congenital Anomaly)
  Sender: FDA-Public Use
  Company Number: HQWYE138110APR07

PATIENT

DRUGS (11)
  1. EFFEXOR XR [Suspect]
     Indication: ANXIETY
     Dosage: SEE IMAGE
     Route: 064
     Dates: end: 20061101
  2. EFFEXOR XR [Suspect]
     Indication: DEPRESSION
     Dosage: SEE IMAGE
     Route: 064
     Dates: end: 20061101
  3. EFFEXOR XR [Suspect]
     Indication: ANXIETY
     Dosage: SEE IMAGE
     Route: 064
     Dates: start: 20061101, end: 20061201
  4. EFFEXOR XR [Suspect]
     Indication: DEPRESSION
     Dosage: SEE IMAGE
     Route: 064
     Dates: start: 20061101, end: 20061201
  5. EFFEXOR XR [Suspect]
     Indication: ANXIETY
     Dosage: SEE IMAGE
     Route: 064
     Dates: start: 20061201
  6. EFFEXOR XR [Suspect]
     Indication: DEPRESSION
     Dosage: SEE IMAGE
     Route: 064
     Dates: start: 20061201
  7. CORTEF [Suspect]
     Dosage: TRANSPLACENTAL
     Route: 064
  8. CYTOMEL [Suspect]
     Dosage: TRANSPLACENTAL
     Route: 064
  9. LEXAPRO [Suspect]
     Dosage: TRANSPLACENTAL
     Route: 064
  10. SYNTHROID [Suspect]
     Dosage: TRANSPLACENTAL
     Route: 064
  11. WELLBUTRIN [Suspect]
     Dosage: TRANSPLACENTAL
     Route: 064

REACTIONS (4)
  - ASTHENIA [None]
  - FOETAL GROWTH RETARDATION [None]
  - FOETAL MOVEMENTS DECREASED [None]
  - TRISOMY 21 [None]
